FAERS Safety Report 8875073 (Version 1)
Quarter: 2012Q4

REPORT INFORMATION
  Report Type: 
  Country: US (occurrence: US)
  Receive Date: 20121029
  Receipt Date: 20121029
  Transmission Date: 20130627
  Serious: No
  Sender: FDA-Public Use
  Company Number: US-PFIZER INC-2012269485

PATIENT
  Age: 40 Year
  Sex: Female
  Weight: 109 kg

DRUGS (1)
  1. EFFEXOR XR [Suspect]
     Indication: DEPRESSION
     Dosage: 150 mg, 1x/day
     Dates: start: 2011

REACTIONS (1)
  - Tinnitus [Not Recovered/Not Resolved]
